FAERS Safety Report 4512874-4 (Version None)
Quarter: 2004Q4

REPORT INFORMATION
  Report Type: 
  Country: None (occurrence: None)
  Receive Date: 20041119
  Receipt Date: 20041119
  Transmission Date: 20050328
  Serious: No
  Sender: FDA-Public Use
  Company Number: None

PATIENT
  Age: 79 Year
  Sex: Female
  Weight: 71.6683 kg

DRUGS (1)
  1. METFORMIN HCL EXTENDED RELEASE [Suspect]

REACTIONS (5)
  - ABDOMINAL PAIN [None]
  - DRUG HYPERSENSITIVITY [None]
  - FATIGUE [None]
  - PHARMACEUTICAL PRODUCT COMPLAINT [None]
  - SWOLLEN TONGUE [None]
